FAERS Safety Report 4791320-X (Version None)
Quarter: 2005Q4

REPORT INFORMATION
  Report Type: 
  Country: None (occurrence: None)
  Receive Date: 20051007
  Receipt Date: 20050928
  Transmission Date: 20060501
  Serious: Yes (Hospitalization)
  Sender: FDA-Public Use
  Company Number: NL-JNJFOC-20050603050

PATIENT
  Sex: Female
  Weight: 91 kg

DRUGS (8)
  1. INFLIXIMAB, RECOMBINANT [Suspect]
     Indication: RHEUMATOID ARTHRITIS
     Route: 042
  2. MELOXICAM [Concomitant]
     Indication: PAIN
  3. LEFLUNOMIDE [Concomitant]
  4. COMBIVENT [Concomitant]
     Route: 065
  5. COMBIVENT [Concomitant]
     Route: 065
  6. SERETIDE [Concomitant]
     Route: 065
  7. SERETIDE [Concomitant]
     Route: 065
  8. PREDNISOLONE [Concomitant]
     Route: 065

REACTIONS (2)
  - ASPERGILLOSIS [None]
  - CHRONIC OBSTRUCTIVE PULMONARY DISEASE [None]
